FAERS Safety Report 7199768-3 (Version None)
Quarter: 2010Q4

REPORT INFORMATION
  Report Type: 
  Country: None (occurrence: None)
  Receive Date: 20101228
  Receipt Date: 20101222
  Transmission Date: 20110411
  Serious: Yes (Other)
  Sender: FDA-Public Use
  Company Number: JP-ROCHE-736379

PATIENT
  Sex: Male
  Weight: 50 kg

DRUGS (17)
  1. ACTEMRA [Suspect]
     Indication: RHEUMATOID ARTHRITIS
     Route: 041
     Dates: start: 20100909, end: 20100909
  2. ACTEMRA [Suspect]
     Route: 041
     Dates: start: 20100928, end: 20100928
  3. PREDONINE [Concomitant]
     Route: 048
  4. OMEPRAL [Concomitant]
     Route: 048
  5. METHYCOBAL [Concomitant]
     Route: 048
  6. GASMOTIN [Concomitant]
     Route: 048
  7. GASCON [Concomitant]
     Route: 048
  8. MAGMITT [Concomitant]
     Route: 048
  9. PROGRAF [Concomitant]
     Route: 048
  10. TOLEDOMIN [Concomitant]
     Route: 048
  11. VOLTAREN [Concomitant]
     Route: 048
  12. GLAKAY [Concomitant]
     Route: 048
  13. SENNOSIDE [Concomitant]
     Route: 048
  14. MAGNESIUM OXIDE [Concomitant]
     Dosage: FORM:PERORAL AGENT
     Route: 048
  15. SPIRIVA [Concomitant]
     Route: 048
  16. BONALON [Concomitant]
     Route: 048
  17. FERROUS CITRATE [Concomitant]
     Route: 048

REACTIONS (1)
  - GASTRIC CANCER STAGE I [None]
